FAERS Safety Report 5633268-4 (Version None)
Quarter: 2008Q1

REPORT INFORMATION
  Report Type: 
  Country: None (occurrence: None)
  Receive Date: 20080221
  Receipt Date: 20071217
  Transmission Date: 20080703
  Serious: Yes (Other)
  Sender: FDA-Public Use
  Company Number: US-MERCK-0712USA07867

PATIENT
  Age: 70 Year
  Sex: Male

DRUGS (1)
  1. COZAAR [Suspect]
     Indication: HYPERTENSION
     Route: 048
     Dates: start: 20050101, end: 20070412

REACTIONS (3)
  - ARTHROPATHY [None]
  - BLOOD TRIGLYCERIDES DECREASED [None]
  - LOW DENSITY LIPOPROTEIN DECREASED [None]
